FAERS Safety Report 4842534-1 (Version None)
Quarter: 2005Q4

REPORT INFORMATION
  Report Type: 
  Country: None (occurrence: None)
  Receive Date: 20051201
  Receipt Date: 20051122
  Transmission Date: 20060501
  Serious: Yes (Hospitalization)
  Sender: FDA-Public Use
  Company Number: US-JNJFOC-20051105835

PATIENT
  Age: 6 Decade
  Sex: Female

DRUGS (2)
  1. REMICADE [Suspect]
     Dosage: PATIENT RECEIVED 2 DOSES OF REMICADE.
     Route: 042
  2. COLAZOL [Concomitant]

REACTIONS (1)
  - FUNGAL INFECTION [None]
